FAERS Safety Report 5657917-X (Version None)
Quarter: 2008Q1

REPORT INFORMATION
  Report Type: 
  Country: None (occurrence: None)
  Receive Date: 20080310
  Receipt Date: 20080229
  Transmission Date: 20080703
  Serious: Yes (Other)
  Sender: FDA-Public Use
  Company Number: PHHY2008JP01969

PATIENT
  Age: 58 Year
  Sex: Male
  Weight: 83 kg

DRUGS (4)
  1. LUDIOMIL [Suspect]
     Indication: DEPRESSION
     Dosage: 10 MG, TID
     Route: 048
     Dates: start: 20080122, end: 20080218
  2. GASTER D [Suspect]
     Dosage: 20 MG, QD
     Route: 048
     Dates: start: 20080216, end: 20080216
  3. SERENACE [Suspect]
     Dosage: 2.25 MG, TID
     Route: 048
     Dates: start: 20080122, end: 20080226
  4. AKINETON [Suspect]
     Dosage: 3 MG, TID
     Route: 048
     Dates: start: 20080122, end: 20080226

REACTIONS (14)
  - ALANINE AMINOTRANSFERASE INCREASED [None]
  - ASPARTATE AMINOTRANSFERASE INCREASED [None]
  - ASTHENIA [None]
  - BLOOD ALKALINE PHOSPHATASE INCREASED [None]
  - BLOOD BILIRUBIN INCREASED [None]
  - BLOOD CREATININE INCREASED [None]
  - BLOOD GLUCOSE INCREASED [None]
  - BLOOD LACTATE DEHYDROGENASE INCREASED [None]
  - GAMMA-GLUTAMYLTRANSFERASE ABNORMAL [None]
  - HYPERGLYCAEMIA [None]
  - LIVER DISORDER [None]
  - NEUROLEPTIC MALIGNANT SYNDROME [None]
  - PYREXIA [None]
  - RENAL FAILURE ACUTE [None]
